FAERS Safety Report 16236079 (Version 1)
Quarter: 2019Q2

REPORT INFORMATION
  Report Type: Spontaneous
  Country: FR (occurrence: FR)
  Receive Date: 20190425
  Receipt Date: 20190425
  Transmission Date: 20190711
  Serious: Yes (Hospitalization)
  Sender: FDA-Public Use
  Company Number: FR-SUN PHARMACEUTICAL INDUSTRIES LTD-2019RR-206189

PATIENT
  Age: 61 Year
  Sex: Male
  Weight: 100 kg

DRUGS (3)
  1. HALDOL [Suspect]
     Active Substance: HALOPERIDOL
     Indication: AUTISM SPECTRUM DISORDER
     Dosage: 10 MILLIGRAM, UNK
     Route: 048
     Dates: start: 2014, end: 20190319
  2. RISPERIDONE. [Suspect]
     Active Substance: RISPERIDONE
     Indication: AUTISM SPECTRUM DISORDER
     Dosage: 8 MILLIGRAM, DAILY
     Route: 048
     Dates: start: 2014, end: 20190319
  3. LEPTICUR [Suspect]
     Active Substance: TROPATEPINE HYDROCHLORIDE
     Indication: AUTISM SPECTRUM DISORDER
     Dosage: 30 MILLIGRAM, UNK
     Route: 042

REACTIONS (3)
  - Intestinal obstruction [Recovered/Resolved]
  - Intestinal pseudo-obstruction [Recovered/Resolved]
  - Respiratory distress [Recovered/Resolved]

NARRATIVE: CASE EVENT DATE: 20190312
